FAERS Safety Report 19446848 (Version 1)
Quarter: 2021Q2

REPORT INFORMATION
  Report Type: Spontaneous
  Country: US (occurrence: US)
  Receive Date: 20210621
  Receipt Date: 20210621
  Transmission Date: 20210717
  Serious: No
  Sender: FDA-Public Use
  Company Number: None

PATIENT
  Age: 58 Year
  Sex: Female
  Weight: 81 kg

DRUGS (12)
  1. HYDROCHOROTHIAZIDE [Concomitant]
     Active Substance: HYDROCHLOROTHIAZIDE
  2. ARMOUR THYROID [Concomitant]
     Active Substance: THYROID, PORCINE
  3. GABAPENTIN. [Concomitant]
     Active Substance: GABAPENTIN
  4. BUSPIRONE [Concomitant]
     Active Substance: BUSPIRONE HYDROCHLORIDE
  5. VITAMIN D [Concomitant]
     Active Substance: VITAMIN D NOS
  6. MAGNESIUM [Concomitant]
     Active Substance: MAGNESIUM
  7. LISINOPRIL. [Concomitant]
     Active Substance: LISINOPRIL
  8. MULTIVITAMIN [Concomitant]
     Active Substance: VITAMINS
  9. MAVENCLAD [Suspect]
     Active Substance: CLADRIBINE
     Indication: MULTIPLE SCLEROSIS
     Dosage: ?          QUANTITY:15 TABLET(S);OTHER FREQUENCY:TWO WEEKS YEARLY;?
     Route: 048
     Dates: start: 20210515, end: 20210611
  10. DEXTROAMPHET SACCHARAT, AMPHET ASPARTATE, DEXTROAMPHET SULFATE AND AMPHET SULFAT [Concomitant]
     Active Substance: AMPHETAMINE ASPARTATE\AMPHETAMINE SULFATE\DEXTROAMPHETAMINE SACCHARATE\DEXTROAMPHETAMINE SULFATE
  11. DIAZEPAM. [Concomitant]
     Active Substance: DIAZEPAM
  12. BUPROPION. [Concomitant]
     Active Substance: BUPROPION

REACTIONS (1)
  - Nausea [None]
